FAERS Safety Report 5036070-X (Version None)
Quarter: 2006Q2

REPORT INFORMATION
  Report Type: 
  Country: None (occurrence: None)
  Receive Date: 20060530
  Receipt Date: 20060210
  Transmission Date: 20061013
  Serious: No
  Sender: FDA-Public Use
  Company Number: MPS1-10513

PATIENT
  Sex: Male

DRUGS (1)
  1. ALDURAZYME [Suspect]
     Indication: MUCOPOLYSACCHARIDOSIS I
     Dosage: 170 U/KG UNK IV
     Route: 042

REACTIONS (3)
  - HAND DEFORMITY [None]
  - LUNG INFECTION [None]
  - UPPER RESPIRATORY TRACT INFECTION [None]
